FAERS Safety Report 8802553 (Version 2)
Quarter: 2015Q1

REPORT INFORMATION
  Report Type: Report from Study
  Country: US (occurrence: US)
  Receive Date: 20120921
  Receipt Date: 20150303
  Transmission Date: 20150721
  Serious: Yes (Death, Hospitalization)
  Sender: FDA-Public Use
  Company Number: US-ROCHE-1102409

PATIENT
  Sex: Male

DRUGS (12)
  1. AVASTIN [Suspect]
     Active Substance: BEVACIZUMAB
     Indication: RENAL CANCER
     Route: 042
     Dates: start: 20050411
  2. NEULASTA [Concomitant]
     Active Substance: PEGFILGRASTIM
     Route: 058
     Dates: start: 20050310
  3. INTERLEUKIN 2 [Concomitant]
     Active Substance: ALDESLEUKIN
     Route: 058
  4. TAXOTERE [Concomitant]
     Active Substance: DOCETAXEL
  5. DILAUDID [Concomitant]
     Active Substance: HYDROMORPHONE HYDROCHLORIDE
  6. AVASTIN [Suspect]
     Active Substance: BEVACIZUMAB
     Indication: MALIGNANT URINARY TRACT NEOPLASM
     Route: 042
  7. BENADRYL [Concomitant]
     Active Substance: DIPHENHYDRAMINE HYDROCHLORIDE
     Route: 042
  8. ZANTAC [Concomitant]
     Active Substance: RANITIDINE HYDROCHLORIDE
     Route: 042
  9. INTERFERON ALFA-2A [Concomitant]
     Active Substance: INTERFERON ALFA-2A
     Route: 058
  10. NEUPOGEN [Concomitant]
     Active Substance: FILGRASTIM
     Route: 058
  11. ARANESP [Concomitant]
     Active Substance: DARBEPOETIN ALFA
     Route: 058
  12. DARVON (UNITED STATES) [Concomitant]
     Indication: PAIN

REACTIONS (14)
  - Decreased appetite [Unknown]
  - Cough [Unknown]
  - Chest pain [Unknown]
  - Weight decreased [Unknown]
  - Positron emission tomogram abnormal [Unknown]
  - Off label use [Unknown]
  - Abdominal pain [Recovered/Resolved]
  - Disease progression [Unknown]
  - Dyspnoea exertional [Unknown]
  - Nausea [Unknown]
  - Death [Fatal]
  - Pain [Unknown]
  - Fatigue [Unknown]
  - Nocturia [Unknown]
